FAERS Safety Report 23623851 (Version 3)
Quarter: 2024Q2

REPORT INFORMATION
  Report Type: Spontaneous
  Country: US (occurrence: US)
  Receive Date: 20240312
  Receipt Date: 20240426
  Transmission Date: 20240716
  Serious: No
  Sender: FDA-Public Use
  Company Number: US-PFIZER INC-PV202400034026

PATIENT
  Age: 54 Year
  Sex: Male

DRUGS (1)
  1. INLYTA [Suspect]
     Active Substance: AXITINIB
     Dosage: 5 MG (UNSPECIFIED FREQUENCY)
     Dates: start: 20240307

REACTIONS (3)
  - Dysphonia [Recovering/Resolving]
  - Arthralgia [Unknown]
  - Blood pressure increased [Unknown]
